FAERS Safety Report 4777919-5 (Version None)
Quarter: 2005Q3

REPORT INFORMATION
  Report Type: 
  Country: None (occurrence: None)
  Receive Date: 20050921
  Receipt Date: 20050905
  Transmission Date: 20060218
  Serious: Yes (Life-Threatening, Hospitalization, Other)
  Sender: FDA-Public Use
  Company Number: H-CH2005-10453

PATIENT
  Age: 23 Year
  Sex: Female

DRUGS (18)
  1. BOSENTAN(BOSENTAN I.PHS TABLET 125 MG) TABLET [Suspect]
     Dosage: SEE IMAGE
     Route: 048
     Dates: start: 20040705, end: 20040801
  2. BOSENTAN(BOSENTAN I.PHS TABLET 125 MG) TABLET [Suspect]
     Dosage: SEE IMAGE
     Route: 048
     Dates: start: 20040802, end: 20050228
  3. BOSENTAN(BOSENTAN I.PHS TABLET 125 MG) TABLET [Suspect]
     Dosage: SEE IMAGE
     Route: 048
     Dates: start: 20050314, end: 20050811
  4. MARCUMAR [Suspect]
     Dosage: O.D., DEPENDENT ON INR, ORAL
     Route: 048
     Dates: start: 20050101, end: 20050811
  5. ALENDRONATE SODIUM [Concomitant]
  6. CALCICHEW (CALCIUM CARBONAE) INFUSION [Concomitant]
  7. SINTROM MITIS (ACENOCOUMAROL) [Concomitant]
  8. HYDROCORT (HYDROCORTISONE ACETATE) CREAM [Concomitant]
  9. PREDNISOLONE [Concomitant]
  10. OCULENTUM SIMPLEX (CETOSTEARYL ALCOHOL, WOOL FAT, PARAFFIN, PETROLATUM [Concomitant]
  11. MICROGYNON (ETHINYLESTRADIOL, LEVONORGESTREL) [Concomitant]
  12. ISOSORBIDE (ISOSORBIDE) [Concomitant]
  13. CALMURID (BETAINE, LACTIC ACID, UREA) [Concomitant]
  14. BETAMETHASONE [Concomitant]
  15. FUCIDINE CAP [Concomitant]
  16. KETOCONAZOLE [Concomitant]
  17. HYDROCET (HYDROCODONE BITARTRATE, PARACETAMOL) [Concomitant]
  18. VASELINE (PARAFIN SOFT) [Concomitant]

REACTIONS (9)
  - BLOOD ALBUMIN DECREASED [None]
  - CHOLANGIOLITIS [None]
  - HAEMATOCRIT DECREASED [None]
  - HAEMOGLOBIN DECREASED [None]
  - HEPATITIS [None]
  - INTERNATIONAL NORMALISED RATIO INCREASED [None]
  - PNEUMONIA VIRAL [None]
  - RETROPERITONEAL HAEMATOMA [None]
  - UPPER GASTROINTESTINAL HAEMORRHAGE [None]
